FAERS Safety Report 13775006 (Version 1)
Quarter: 2017Q3

REPORT INFORMATION
  Report Type: Spontaneous
  Country: NL (occurrence: NL)
  Receive Date: 20170720
  Receipt Date: 20170720
  Transmission Date: 20171127
  Serious: Yes (Death, Life-Threatening, Hospitalization)
  Sender: FDA-Public Use
  Company Number: NL-SA-A01200700196

PATIENT
  Age: 54 Year
  Sex: Male

DRUGS (3)
  1. 5-FU [Concomitant]
     Active Substance: FLUOROURACIL
     Indication: COLON CANCER METASTATIC
     Dosage: DOSE TEXT: CUMMULATIVE DOSE 28,600 MG/M2
     Route: 065
  2. LEUCOVORIN. [Concomitant]
     Active Substance: LEUCOVORIN
     Indication: COLON CANCER METASTATIC
     Dosage: DOSE TEXT: CUMMULATIVE DOSE 2200 MG/M2
     Route: 065
  3. OXALIPLATIN. [Suspect]
     Active Substance: OXALIPLATIN
     Indication: COLON CANCER METASTATIC
     Dosage: DOSE TEXT: CUMMULATIVE DOSE 935 MG/M2
     Route: 065

REACTIONS (8)
  - Coagulopathy [Unknown]
  - Multiple organ dysfunction syndrome [Fatal]
  - Ascites [Unknown]
  - Venoocclusive liver disease [Fatal]
  - Systemic inflammatory response syndrome [Fatal]
  - Hepatic failure [Unknown]
  - Blood bilirubin increased [Unknown]
  - Ammonia increased [Unknown]
